FAERS Safety Report 21721520 (Version 1)
Quarter: 2022Q4

REPORT INFORMATION
  Report Type: Spontaneous
  Country: US (occurrence: None)
  Receive Date: 20221212
  Receipt Date: 20221212
  Transmission Date: 20230112
  Serious: No
  Sender: FDA-Public Use
  Company Number: None

PATIENT
  Age: 68 Year
  Sex: Female

DRUGS (2)
  1. CAPECITABINE [Suspect]
     Active Substance: CAPECITABINE
     Dates: start: 20220922
  2. Hyperbaric chamber therapy [Concomitant]

REACTIONS (3)
  - Dyspnoea [None]
  - Chest discomfort [None]
  - Blindness [None]

NARRATIVE: CASE EVENT DATE: 20220922
